FAERS Safety Report 8614751-6 (Version None)
Quarter: 2012Q3

REPORT INFORMATION
  Report Type: 
  Country: None (occurrence: None)
  Receive Date: 20120823
  Receipt Date: 20120817
  Transmission Date: 20120928
  Serious: Yes (Hospitalization)
  Sender: FDA-Public Use
  Company Number: US-PFIZER INC-2012203162

PATIENT
  Age: 61 Year
  Sex: Male
  Weight: 92.5 kg

DRUGS (3)
  1. VELCADE [Suspect]
     Indication: MULTIPLE MYELOMA
     Dosage: 2.6 MG,D1,4,8,11 Q 3 WEEKS
     Route: 042
     Dates: start: 20110307, end: 20120428
  2. ADRIAMYCIN PFS [Suspect]
     Indication: MULTIPLE MYELOMA
     Dosage: 20 MG, D1 AND D3 Q 3 WEEKS
     Route: 042
     Dates: start: 20110307, end: 20110425
  3. PAMIDRONATE DISODIUM [Suspect]
     Indication: OSTEOLYSIS
     Dosage: 90 MG,D1 Q 3 WEEKS
     Route: 042
     Dates: start: 20110307, end: 20110418

REACTIONS (1)
  - DEEP VEIN THROMBOSIS [None]
